FAERS Safety Report 10144029 (Version 2)
Quarter: 2014Q2

REPORT INFORMATION
  Report Type: Spontaneous
  Country: SE (occurrence: SE)
  Receive Date: 20140430
  Receipt Date: 20140430
  Transmission Date: 20141212
  Serious: Yes (Other)
  Sender: FDA-Public Use
  Company Number: SE-AMGEN-SWESP2014028381

PATIENT
  Age: 70 Year
  Sex: Female

DRUGS (5)
  1. VECTIBIX [Suspect]
     Indication: COLORECTAL CANCER METASTATIC
     Dosage: 390 MG, Q2WK
     Route: 065
     Dates: start: 20140226, end: 20140408
  2. NOVOMIX [Concomitant]
     Indication: DIABETES MELLITUS
     Dosage: 100 IU/ML, 10-18 UNITS 3XDAY
     Route: 058
     Dates: start: 20140131
  3. BISOPROLOL [Concomitant]
     Dosage: 5 MG, 1XDAY
     Route: 048
     Dates: start: 20140131
  4. KALEROID [Concomitant]
     Dosage: 750 MG, 1X2/DAY
     Route: 048
  5. NACL [Concomitant]
     Dosage: 500 MG, 2X3/DAY
     Route: 048

REACTIONS (3)
  - Stoma site haemorrhage [Not Recovered/Not Resolved]
  - Skin fragility [Not Recovered/Not Resolved]
  - Skin fissures [Not Recovered/Not Resolved]
